FAERS Safety Report 7765916-7 (Version None)
Quarter: 2011Q3

REPORT INFORMATION
  Report Type: 
  Country: None (occurrence: None)
  Receive Date: 20110921
  Receipt Date: 20110919
  Transmission Date: 20111222
  Serious: Yes (Hospitalization, Other)
  Sender: FDA-Public Use
  Company Number: FR-ABBOTT-11P-056-0855561-00

PATIENT
  Sex: Male

DRUGS (4)
  1. NEURONTIN [Suspect]
     Indication: PRODUCT USED FOR UNKNOWN INDICATION
     Route: 048
  2. KALETRA [Suspect]
     Indication: HIV INFECTION
     Route: 048
  3. DIAMICRON [Suspect]
     Indication: PRODUCT USED FOR UNKNOWN INDICATION
     Route: 048
  4. ABACAVIR SULFATE/LAMIVUDINE [Suspect]
     Indication: HIV INFECTION
     Route: 048

REACTIONS (11)
  - DYSPNOEA EXERTIONAL [None]
  - INFLAMMATION [None]
  - CARDIAC DISORDER [None]
  - ANAEMIA [None]
  - TRIFASCICULAR BLOCK [None]
  - SYNCOPE [None]
  - MALAISE [None]
  - AZOTAEMIA [None]
  - BLOOD CREATINE INCREASED [None]
  - SINUS BRADYCARDIA [None]
  - ASTHENIA [None]
